FAERS Safety Report 25844218 (Version 1)
Quarter: 2025Q3

REPORT INFORMATION
  Report Type: Report from Study
  Country: EU (occurrence: EU)
  Receive Date: 20250925
  Receipt Date: 20250925
  Transmission Date: 20251021
  Serious: Yes (Hospitalization, Other)
  Sender: BRISTOL-MYERS SQUIBB COMPANY
  Company Number: None

PATIENT
  Age: 49 Year
  Sex: Female

DRUGS (2)
  1. OPDIVO [Suspect]
     Active Substance: NIVOLUMAB
     Indication: Malignant melanoma
     Dosage: 78 MG, EVERY 3 WEEKS?1 VIAL OF 10 ML
     Dates: start: 20250609, end: 20250814
  2. YERVOY [Suspect]
     Active Substance: IPILIMUMAB
     Indication: Malignant melanoma
     Dosage: 234 MG, EVERY 3 WEEKS?1 VIAL OF 10 ML
     Dates: start: 20250609, end: 20250814

REACTIONS (3)
  - Drug reaction with eosinophilia and systemic symptoms [Recovered/Resolved]
  - Immune-mediated hepatitis [Recovering/Resolving]
  - Mixed liver injury [Recovering/Resolving]

NARRATIVE: CASE EVENT DATE: 20250818
